FAERS Safety Report 19372615 (Version 1)
Quarter: 2021Q2

REPORT INFORMATION
  Report Type: Spontaneous
  Country: IT (occurrence: IT)
  Receive Date: 20210604
  Receipt Date: 20210604
  Transmission Date: 20210717
  Serious: Yes (Other)
  Sender: FDA-Public Use
  Company Number: IT-SUN PHARMACEUTICAL INDUSTRIES LTD-2021R1-298947

PATIENT
  Age: 5 Year
  Sex: Female

DRUGS (1)
  1. RISPERIDONE. [Suspect]
     Active Substance: RISPERIDONE
     Indication: OPPOSITIONAL DEFIANT DISORDER
     Dosage: 1 MILLIGRAM, DAILY
     Route: 065

REACTIONS (5)
  - Drug effect less than expected [Unknown]
  - Hyperphagia [Unknown]
  - Enuresis [Recovered/Resolved]
  - Hyperprolactinaemia [Recovering/Resolving]
  - Weight increased [Unknown]
